FAERS Safety Report 10137423 (Version 1)
Quarter: 2014Q2

REPORT INFORMATION
  Report Type: Spontaneous
  Country: US (occurrence: None)
  Receive Date: 20140428
  Receipt Date: 20140428
  Transmission Date: 20141212
  Serious: No
  Sender: FDA-Public Use
  Company Number: None

PATIENT
  Age: 41 Year
  Sex: Female
  Weight: 54.43 kg

DRUGS (2)
  1. ESCITALOPRAM [Suspect]
     Indication: ANXIETY
     Route: 048
     Dates: start: 20140330
  2. ESCITALOPRAM [Suspect]
     Indication: PANIC ATTACK
     Route: 048
     Dates: start: 20140330

REACTIONS (3)
  - Anxiety [None]
  - Disease recurrence [None]
  - Product substitution issue [None]
